FAERS Safety Report 7435358-2 (Version None)
Quarter: 2011Q2

REPORT INFORMATION
  Report Type: 
  Country: None (occurrence: None)
  Receive Date: 20110425
  Receipt Date: 20110420
  Transmission Date: 20111010
  Serious: Yes (Hospitalization)
  Sender: FDA-Public Use
  Company Number: B0712291A

PATIENT
  Sex: Female

DRUGS (1)
  1. AVANDIA [Suspect]
     Indication: DIABETES MELLITUS
     Route: 048

REACTIONS (14)
  - CHEST PAIN [None]
  - ALOPECIA [None]
  - SARCOIDOSIS [None]
  - FLUID RETENTION [None]
  - PSYCHOTIC DISORDER [None]
  - DEAFNESS UNILATERAL [None]
  - HYPERTENSION [None]
  - HYPERLIPIDAEMIA [None]
  - BRAIN INJURY [None]
  - HAEMANGIOMA [None]
  - CARDIAC DISORDER [None]
  - GLAUCOMA [None]
  - ABASIA [None]
  - MENTAL DISORDER DUE TO A GENERAL MEDICAL CONDITION [None]
